FAERS Safety Report 9475733 (Version 2)
Quarter: 2013Q3

REPORT INFORMATION
  Report Type: Spontaneous
  Country: US (occurrence: US)
  Receive Date: 20130826
  Receipt Date: 20130829
  Transmission Date: 20140515
  Serious: No
  Sender: FDA-Public Use
  Company Number: US-009507513-1308USA009193

PATIENT
  Age: 19 Year
  Sex: Female
  Weight: 83.6 kg

DRUGS (1)
  1. NEXPLANON [Suspect]
     Indication: CONTRACEPTION
     Dosage: UNK, 68 MG ROD, ONE STANDARD PACKAGE OF PF APPLI OF ONE
     Route: 023
     Dates: start: 20130111, end: 20130819

REACTIONS (4)
  - Device breakage [Unknown]
  - Product quality issue [Unknown]
  - No adverse event [Unknown]
  - Incorrect route of drug administration [Unknown]
